FAERS Safety Report 8836429 (Version 1)
Quarter: 2012Q4

REPORT INFORMATION
  Report Type: 
  Country: US (occurrence: US)
  Receive Date: 20121011
  Receipt Date: 20121011
  Transmission Date: 20130627
  Serious: No
  Sender: FDA-Public Use
  Company Number: US-ASTRAZENECA-2012SE74531

PATIENT
  Age: 67 Year
  Sex: Female
  Weight: 77.1 kg

DRUGS (5)
  1. CRESTOR [Suspect]
     Indication: BLOOD CHOLESTEROL ABNORMAL
     Route: 048
     Dates: start: 201209
  2. AMLODIPINE [Concomitant]
     Indication: BLOOD PRESSURE ABNORMAL
  3. SYNTHROID [Concomitant]
     Indication: THYROID DISORDER
  4. VOLTAREN [Concomitant]
     Indication: ARTHROPATHY
  5. ENALAPRIL [Concomitant]
     Indication: BLOOD PRESSURE ABNORMAL

REACTIONS (4)
  - Feeling hot [Not Recovered/Not Resolved]
  - Diarrhoea [Not Recovered/Not Resolved]
  - Musculoskeletal stiffness [Not Recovered/Not Resolved]
  - Abdominal pain upper [Not Recovered/Not Resolved]
